FAERS Safety Report 4788679-6 (Version None)
Quarter: 2005Q4

REPORT INFORMATION
  Report Type: 
  Country: None (occurrence: None)
  Receive Date: 20051005
  Receipt Date: 20050928
  Transmission Date: 20060501
  Serious: Yes (Other)
  Sender: FDA-Public Use
  Company Number: PHBS2005JP14306

PATIENT
  Age: 61 Year
  Sex: Male

DRUGS (4)
  1. TACROLIMUS [Concomitant]
     Indication: RENAL TRANSPLANT
  2. CELLCEPT [Concomitant]
     Indication: RENAL TRANSPLANT
  3. STEROIDS NOS [Concomitant]
     Indication: RENAL TRANSPLANT
  4. SIMULECT [Suspect]
     Indication: RENAL TRANSPLANT

REACTIONS (2)
  - DIABETES MELLITUS [None]
  - PHAEOCHROMOCYTOMA [None]
